FAERS Safety Report 20938493 (Version 1)
Quarter: 2022Q2

REPORT INFORMATION
  Report Type: Spontaneous
  Country: US (occurrence: US)
  Receive Date: 20220609
  Receipt Date: 20220609
  Transmission Date: 20220721
  Serious: Yes (Other)
  Sender: FDA-Public Use
  Company Number: US-PFIZER INC-202200785906

PATIENT
  Age: 4 Year
  Sex: Female

DRUGS (3)
  1. SOLU-MEDROL [Suspect]
     Active Substance: METHYLPREDNISOLONE SODIUM SUCCINATE
     Dosage: UNK (6 WEEKS OF PULSE DOSE)
  2. PREDNISONE [Suspect]
     Active Substance: PREDNISONE
     Dosage: 60 MG/M2, DAILY (6 WEEK)
  3. PREDNISONE [Suspect]
     Active Substance: PREDNISONE
     Dosage: 40 MG/M2, DAILY (FOR 4 WEEKS)

REACTIONS (1)
  - Abnormal behaviour [Unknown]
